FAERS Safety Report 6961016-4 (Version None)
Quarter: 2010Q3

REPORT INFORMATION
  Report Type: 
  Country: None (occurrence: None)
  Receive Date: 20100830
  Receipt Date: 20100825
  Transmission Date: 20110219
  Serious: Yes (Hospitalization)
  Sender: FDA-Public Use
  Company Number: WWISSUE-485

PATIENT
  Sex: Male

DRUGS (1)
  1. DOXYCYCLINE HYCLATE [Suspect]
     Dosage: 100MG, ORAL
     Route: 048
     Dates: start: 20100618, end: 20100706

REACTIONS (3)
  - CHEST PAIN [None]
  - OESOPHAGEAL PAIN [None]
  - RASH [None]
